FAERS Safety Report 9651104 (Version 5)
Quarter: 2014Q1

REPORT INFORMATION
  Report Type: Spontaneous
  Country: US (occurrence: US)
  Receive Date: 20131029
  Receipt Date: 20140121
  Transmission Date: 20141002
  Serious: Yes (Death)
  Sender: FDA-Public Use
  Company Number: US-PFIZER INC-2013306954

PATIENT
  Age: 55 Year
  Sex: Male

DRUGS (7)
  1. XALKORI [Suspect]
     Indication: NON-SMALL CELL LUNG CANCER METASTATIC
     Dosage: 250 MG, 2X/DAY
     Route: 048
     Dates: start: 201304
  2. ATIVAN [Concomitant]
     Indication: ANXIETY
     Dosage: 1 MG, 3X/DAY
  3. KCL [Concomitant]
     Indication: HYPOKALAEMIA
     Dosage: 10 MEQ, 1X/DAY
  4. ZOCOR [Concomitant]
     Dosage: UNK, AS NEEDED
  5. LOVENOX [Concomitant]
     Indication: DEEP VEIN THROMBOSIS
     Dosage: 60 MG EVERY 12 HOURS
     Route: 058
  6. LOVENOX [Concomitant]
     Indication: PULMONARY EMBOLISM
  7. VIAGRA [Concomitant]
     Dosage: 25 MG, 1 HR BEFORE SEXUAL ACTIVITY
     Route: 048
     Dates: end: 20131001

REACTIONS (2)
  - Disease progression [Fatal]
  - Non-small cell lung cancer metastatic [Fatal]
